FAERS Safety Report 4423087-9 (Version None)
Quarter: 2004Q3

REPORT INFORMATION
  Report Type: 
  Country: None (occurrence: None)
  Receive Date: 20040810
  Receipt Date: 20040810
  Transmission Date: 20050211
  Serious: Yes (Other)
  Sender: FDA-Public Use
  Company Number: None

PATIENT
  Age: 27 Year
  Sex: Male
  Weight: 139.2543 kg

DRUGS (2)
  1. EFFEXOR XR [Suspect]
     Indication: DEPRESSION
     Dosage: 150 MG 1 A DAY ORAL
     Route: 048
     Dates: start: 20030315, end: 20040806
  2. EFFEXOR XR [Suspect]
     Indication: STRESS SYMPTOMS
     Dosage: 150 MG 1 A DAY ORAL
     Route: 048
     Dates: start: 20030315, end: 20040806

REACTIONS (4)
  - CRYING [None]
  - DRUG WITHDRAWAL SYNDROME [None]
  - IMPAIRED WORK ABILITY [None]
  - MUSCLE TWITCHING [None]
